FAERS Safety Report 12494276 (Version 2)
Quarter: 2018Q3

REPORT INFORMATION
  Report Type: Report from Study
  Country: PA (occurrence: PA)
  Receive Date: 20160623
  Receipt Date: 20180827
  Transmission Date: 20181010
  Serious: No
  Sender: FDA-Public Use
  Company Number: PHHY2016PA079188

PATIENT
  Age: 58 Year
  Sex: Female

DRUGS (1)
  1. TASIGNA [Suspect]
     Active Substance: NILOTINIB
     Indication: PRODUCT USED FOR UNKNOWN INDICATION
     Dosage: 200 MG, QD
     Route: 065

REACTIONS (7)
  - Abdominal pain upper [Recovering/Resolving]
  - Swelling [Unknown]
  - Hypersensitivity [Unknown]
  - Pruritus generalised [Unknown]
  - Abdominal distension [Recovering/Resolving]
  - Malaise [Unknown]
  - Drug ineffective [Unknown]
